FAERS Safety Report 5362221-3 (Version None)
Quarter: 2007Q2

REPORT INFORMATION
  Report Type: 
  Country: None (occurrence: None)
  Receive Date: 20070618
  Receipt Date: 20070618
  Transmission Date: 20071010
  Serious: No
  Sender: FDA-Public Use
  Company Number: None

PATIENT
  Age: 52 Year
  Sex: Female

DRUGS (2)
  1. BEXTRA [Suspect]
     Dosage: TABLET
  2. BENTYL [Suspect]
     Dosage: VARIOUS

REACTIONS (8)
  - CONTRAINDICATION TO MEDICAL TREATMENT [None]
  - DEHYDRATION [None]
  - DRUG DISPENSING ERROR [None]
  - DYSPEPSIA [None]
  - IMPAIRED WORK ABILITY [None]
  - MALAISE [None]
  - MEDICATION ERROR [None]
  - WRONG DRUG ADMINISTERED [None]
